FAERS Safety Report 14680846 (Version 1)
Quarter: 2018Q1

REPORT INFORMATION
  Report Type: Spontaneous
  Country: US (occurrence: US)
  Receive Date: 20180324
  Receipt Date: 20180324
  Transmission Date: 20180509
  Serious: Yes (Hospitalization)
  Sender: FDA-Public Use
  Company Number: None

PATIENT
  Age: 67 Year
  Sex: Male

DRUGS (2)
  1. SULFAMETHOXAZOLE/TRIMETHOPRIM [Suspect]
     Active Substance: SULFAMETHOXAZOLE\TRIMETHOPRIM
     Indication: AXILLARY MASS
     Route: 048
     Dates: start: 20170705, end: 20170711
  2. SIMVASTIN [Suspect]
     Active Substance: SIMVASTATIN
     Indication: HYPERLIPIDAEMIA
     Dosage: 20 MG PM PO
     Route: 048
     Dates: start: 20170705, end: 20170711

REACTIONS (1)
  - Angioedema [None]

NARRATIVE: CASE EVENT DATE: 20170712
